FAERS Safety Report 8615841-4 (Version None)
Quarter: 2012Q3

REPORT INFORMATION
  Report Type: 
  Country: None (occurrence: None)
  Receive Date: 20120823
  Receipt Date: 20120816
  Transmission Date: 20120928
  Serious: Yes (Hospitalization)
  Sender: FDA-Public Use
  Company Number: PHHO2011US021723

PATIENT
  Sex: Male
  Weight: 74.83 kg

DRUGS (5)
  1. ACETYLSALICYLIC ACID SRT [Suspect]
     Indication: CARDIOVASCULAR EVENT PROPHYLAXIS
     Dosage: 81 MG, QD
     Route: 048
     Dates: start: 20080101, end: 20111127
  2. BLINDED NO TREATMENT RECEIVED [Suspect]
     Indication: CARDIOVASCULAR EVENT PROPHYLAXIS
     Dosage: DOUBLE BLINDED
     Dates: start: 20110721
  3. PLACEBO [Suspect]
     Indication: CARDIOVASCULAR EVENT PROPHYLAXIS
     Dosage: DOUBLE BLINDED
     Dates: start: 20110721
  4. ILARIS [Suspect]
     Indication: CARDIOVASCULAR EVENT PROPHYLAXIS
     Dosage: DOUBLE BLINDED
     Dates: start: 20110721
  5. PLAVIX [Concomitant]
     Indication: CARDIOVASCULAR EVENT PROPHYLAXIS
     Dosage: 75 MG, QD
     Route: 048
     Dates: start: 20090101

REACTIONS (7)
  - GASTRITIS EROSIVE [None]
  - MASTOIDITIS [None]
  - DIZZINESS [None]
  - EROSIVE DUODENITIS [None]
  - CERUMEN IMPACTION [None]
  - GASTRIC ULCER [None]
  - NON-CARDIAC CHEST PAIN [None]
